FAERS Safety Report 5622446-6 (Version None)
Quarter: 2008Q1

REPORT INFORMATION
  Report Type: 
  Country: None (occurrence: None)
  Receive Date: 20080114
  Receipt Date: 20070809
  Transmission Date: 20080703
  Serious: Yes (Hospitalization)
  Sender: FDA-Public Use
  Company Number: A03200705058

PATIENT
  Age: 77 Year
  Sex: Female
  Weight: 68.48 kg

DRUGS (5)
  1. PLAVIX [Suspect]
     Indication: CORONARY ARTERIAL STENT INSERTION
     Dosage: 75 MG QD - ORAL
     Route: 048
     Dates: start: 20040123
  2. GLIPIZIDE [Concomitant]
  3. METFORMIN HCL [Concomitant]
  4. LEVOTHYROXINE SODIUM [Concomitant]
  5. ACETYLSALICYLIC ACID SRT [Concomitant]

REACTIONS (1)
  - MYOCARDIAL INFARCTION [None]
